FAERS Safety Report 5516179-4 (Version None)
Quarter: 2007Q4

REPORT INFORMATION
  Report Type: 
  Country: None (occurrence: None)
  Receive Date: 20071114
  Receipt Date: 20070104
  Transmission Date: 20080405
  Serious: No
  Sender: FDA-Public Use
  Company Number: A0633726A

PATIENT
  Age: 52 Year
  Sex: Female

DRUGS (1)
  1. COMMIT [Suspect]

REACTIONS (6)
  - ABDOMINAL PAIN UPPER [None]
  - DYSPEPSIA [None]
  - ERYTHEMA [None]
  - GINGIVAL PAIN [None]
  - LACRIMATION INCREASED [None]
  - SALIVARY HYPERSECRETION [None]
